FAERS Safety Report 9166588 (Version 3)
Quarter: 2013Q2

REPORT INFORMATION
  Report Type: Spontaneous
  Country: US (occurrence: US)
  Receive Date: 20130315
  Receipt Date: 20130524
  Transmission Date: 20140414
  Serious: Yes (Hospitalization, Other)
  Sender: FDA-Public Use
  Company Number: US-009507513-2009SP038948

PATIENT
  Sex: Female
  Weight: 81.65 kg

DRUGS (1)
  1. NUVARING [Suspect]
     Indication: CONTRACEPTION
     Dosage: UNK
     Route: 067
     Dates: start: 200408, end: 200505

REACTIONS (19)
  - Systemic lupus erythematosus [Unknown]
  - Pulmonary embolism [Unknown]
  - Local swelling [Unknown]
  - Pulmonary embolism [Unknown]
  - Deep vein thrombosis [Unknown]
  - Thrombosis [Unknown]
  - Metrorrhagia [Unknown]
  - Breast tenderness [Unknown]
  - Chest pain [Unknown]
  - Pyrexia [Unknown]
  - Bronchitis [Unknown]
  - Neutropenia [Unknown]
  - Stomatitis [Unknown]
  - Urinary tract infection [Recovered/Resolved]
  - Drug hypersensitivity [Unknown]
  - Sinus disorder [Unknown]
  - Maternal exposure before pregnancy [Recovered/Resolved]
  - Caesarean section [Unknown]
  - Female sterilisation [Unknown]
